FAERS Safety Report 8585067-1 (Version None)
Quarter: 2012Q3

REPORT INFORMATION
  Report Type: 
  Country: None (occurrence: None)
  Receive Date: 20120810
  Receipt Date: 20120724
  Transmission Date: 20120928
  Serious: No
  Sender: FDA-Public Use
  Company Number: US-009507513-1207USA002100

PATIENT

DRUGS (2)
  1. RIBASPHERE [Suspect]
     Indication: HEPATITIS C
     Dosage: UNK
     Dates: start: 20111101, end: 20120301
  2. PEG-INTRON [Suspect]
     Indication: HEPATITIS C
     Dosage: 150 MICROGRAM, UNK
     Route: 058
     Dates: start: 20111101

REACTIONS (6)
  - WEIGHT DECREASED [None]
  - RASH [None]
  - AGEUSIA [None]
  - DECREASED APPETITE [None]
  - PRODUCT QUALITY ISSUE [None]
  - FATIGUE [None]
